FAERS Safety Report 8812012 (Version 2)
Quarter: 2015Q1

REPORT INFORMATION
  Report Type: Report from Study
  Country: US (occurrence: US)
  Receive Date: 20120927
  Receipt Date: 20150117
  Transmission Date: 20150721
  Serious: Yes (Death)
  Sender: FDA-Public Use
  Company Number: US-ROCHE-1130041

PATIENT
  Sex: Male

DRUGS (11)
  1. AREDIA [Concomitant]
     Active Substance: PAMIDRONATE DISODIUM
  2. GLUTAMINE [Concomitant]
     Active Substance: GLUTAMINE
  3. HERCEPTIN [Suspect]
     Active Substance: TRASTUZUMAB
     Indication: PROSTATE CANCER
     Route: 065
  4. TAXOL [Concomitant]
     Active Substance: PACLITAXEL
  5. LUPRON [Concomitant]
     Active Substance: LEUPROLIDE ACETATE
  6. ALEVE [Concomitant]
     Active Substance: NAPROXEN SODIUM
  7. PROSCAR [Concomitant]
     Active Substance: FINASTERIDE
     Route: 065
  8. COUMADIN [Concomitant]
     Active Substance: WARFARIN SODIUM
  9. CARBOPLATIN. [Concomitant]
     Active Substance: CARBOPLATIN
  10. SONATA (UNITED STATES) [Concomitant]
  11. BENADRYL [Concomitant]
     Active Substance: DIPHENHYDRAMINE HYDROCHLORIDE

REACTIONS (1)
  - Death [Fatal]
